FAERS Safety Report 8695617 (Version 2)
Quarter: 2012Q4

REPORT INFORMATION
  Report Type: 
  Country: US (occurrence: US)
  Receive Date: 20120731
  Receipt Date: 20120914
  Transmission Date: 20130627
  Serious: Yes (Hospitalization)
  Sender: FDA-Public Use
  Company Number: US-B.I. PHARMACEUTICALS,INC./RIDGEFIELD-2012-BP-17020BP

PATIENT
  Sex: Male

DRUGS (16)
  1. SPIRIVA [Suspect]
     Indication: CHRONIC OBSTRUCTIVE PULMONARY DISEASE
     Dosage: 18 mcg
     Route: 055
     Dates: start: 2008
  2. FLOMAX CAPSULES [Suspect]
     Indication: URINE FLOW DECREASED
     Dosage: 0.4 mg
     Dates: start: 2011
  3. LEVOTHYROXINE [Concomitant]
     Indication: THYROID DISORDER
     Dosage: 88 mcg
  4. ASPIRIN [Concomitant]
  5. COUMADIN [Concomitant]
  6. DIOVAN [Concomitant]
     Indication: BLOOD PRESSURE
  7. VENTOLIN HFA [Concomitant]
     Indication: DYSPNOEA
  8. NITROGLYCERIN [Concomitant]
     Indication: CARDIAC DISORDER
  9. OMEPRAZOLE [Concomitant]
     Indication: GASTROOESOPHAGEAL REFLUX DISEASE
  10. GLIMEPIRIDE [Concomitant]
     Indication: GLUCOSE TOLERANCE IMPAIRED
  11. SIMETHICONE [Concomitant]
     Indication: FLATULENCE
  12. BUMETANIDE [Concomitant]
     Indication: DIURETIC THERAPY
  13. FORADIL [Concomitant]
     Indication: PROSTATOMEGALY
  14. METOPROLOL [Concomitant]
     Indication: BLOOD PRESSURE
  15. LIPITOR [Concomitant]
     Indication: BLOOD CHOLESTEROL INCREASED
  16. ALBUTEROL [Concomitant]
     Indication: DYSPNOEA

REACTIONS (4)
  - Urinary tract infection [Recovered/Resolved]
  - Haematuria [Recovered/Resolved]
  - Urine flow decreased [Recovered/Resolved]
  - Product quality issue [Unknown]
